FAERS Safety Report 18380995 (Version 5)
Quarter: 2021Q2

REPORT INFORMATION
  Report Type: Report from Study
  Country: US (occurrence: US)
  Receive Date: 20201014
  Receipt Date: 20210528
  Transmission Date: 20210717
  Serious: Yes (Death, Hospitalization, Other)
  Sender: FDA-Public Use
  Company Number: US-GLAXOSMITHKLINE-US2020GSK201120

PATIENT
  Age: 54 Year
  Sex: Male
  Weight: 82.3 kg

DRUGS (1)
  1. BELANTAMAB MAFODOTIN. [Suspect]
     Active Substance: BELANTAMAB MAFODOTIN
     Indication: PLASMA CELL MYELOMA
     Dosage: 2.5 MG/KG, CYC
     Route: 042
     Dates: start: 20200722, end: 20200901

REACTIONS (6)
  - Plasma cell myeloma [Fatal]
  - Mental status changes [Unknown]
  - Vasogenic cerebral oedema [Unknown]
  - Mental status changes [Not Recovered/Not Resolved]
  - Pneumonia [Recovering/Resolving]
  - Metastases to central nervous system [Unknown]

NARRATIVE: CASE EVENT DATE: 20201007
